FAERS Safety Report 14937265 (Version 1)
Quarter: 2018Q2

REPORT INFORMATION
  Report Type: Spontaneous
  Country: RU (occurrence: RU)
  Receive Date: 20180525
  Receipt Date: 20180525
  Transmission Date: 20180711
  Serious: Yes (Other)
  Sender: FDA-Public Use
  Company Number: RU-MERCK KGAA-2048430

PATIENT
  Age: 48 Year
  Sex: Female
  Weight: 86 kg

DRUGS (2)
  1. THYROZOL [Suspect]
     Active Substance: METHIMAZOLE
  2. NOVOTHYROX [Suspect]
     Active Substance: LEVOTHYROXINE SODIUM
     Indication: AUTOIMMUNE THYROIDITIS

REACTIONS (6)
  - Thyroid dermatopathy [Not Recovered/Not Resolved]
  - Nerve compression [None]
  - Endocrine ophthalmopathy [Recovering/Resolving]
  - Metrorrhagia [Recovered/Resolved]
  - Arthralgia [None]
  - Hair growth abnormal [None]
